FAERS Safety Report 5546839-0 (Version None)
Quarter: 2007Q4

REPORT INFORMATION
  Report Type: 
  Country: None (occurrence: None)
  Receive Date: 20071206
  Receipt Date: 20071024
  Transmission Date: 20080405
  Serious: Yes (Death)
  Sender: FDA-Public Use
  Company Number: M7001-02870-SPO-FR

PATIENT
  Age: 62 Year
  Sex: Male

DRUGS (3)
  1. TARGRETIN [Suspect]
     Indication: MYCOSIS FUNGOIDES
     Dosage: ORAL
     Route: 048
  2. CARYOLYSINE (CHLORMETHINE HYDROCHLORIDE) [Concomitant]
  3. ATORVASTATIN CALCIUM [Concomitant]

REACTIONS (1)
  - METASTASES TO NERVOUS SYSTEM [None]
